FAERS Safety Report 16445068 (Version 1)
Quarter: 2019Q2

REPORT INFORMATION
  Report Type: Spontaneous
  Country: CN (occurrence: CN)
  Receive Date: 20190618
  Receipt Date: 20190618
  Transmission Date: 20190711
  Serious: Yes (Hospitalization)
  Sender: FDA-Public Use
  Company Number: CN-ASTRAZENECA-2019SE84969

PATIENT
  Sex: Male
  Weight: 50 kg

DRUGS (2)
  1. TAGRISSO [Suspect]
     Active Substance: OSIMERTINIB
     Indication: LUNG NEOPLASM MALIGNANT
     Route: 048
     Dates: start: 20190502
  2. MONTMORILLONITE [Concomitant]
     Active Substance: MONTMORILLONITE
     Dosage: 1 PACKET, THREE TIMES OR LESS THAN THREE TIMES A DAY (1 HOUR BEFORE LUNCH, ABOUT 11AM) FOR ABOUT ...

REACTIONS (2)
  - Blood albumin decreased [Unknown]
  - Diarrhoea [Not Recovered/Not Resolved]
